FAERS Safety Report 7277333-7 (Version None)
Quarter: 2011Q1

REPORT INFORMATION
  Report Type: 
  Country: None (occurrence: None)
  Receive Date: 20110203
  Receipt Date: 20110203
  Transmission Date: 20110831
  Serious: Yes (Disabling)
  Sender: FDA-Public Use
  Company Number: None

PATIENT
  Sex: Male

DRUGS (1)
  1. DEXAMETHASONE [Suspect]
     Indication: ARTHRALGIA
     Dosage: 1 ML - 4 MG 9-30-10 INJECTION
     Route: 058
     Dates: start: 20100930

REACTIONS (7)
  - ULCER [None]
  - INFLAMMATION [None]
  - SKIN DISCOLOURATION [None]
  - CYANOSIS [None]
  - ERYTHEMA [None]
  - FEELING HOT [None]
  - PAIN [None]
